FAERS Safety Report 6071762-5 (Version None)
Quarter: 2009Q1

REPORT INFORMATION
  Report Type: 
  Country: None (occurrence: None)
  Receive Date: 20090209
  Receipt Date: 20090209
  Transmission Date: 20090719
  Serious: Yes (Hospitalization)
  Sender: FDA-Public Use
  Company Number: None

PATIENT
  Age: 46 Year
  Sex: Female

DRUGS (1)
  1. ADENOSINE [Suspect]
     Indication: CARDIAC FAILURE CONGESTIVE

REACTIONS (3)
  - CONTUSION [None]
  - HYPERSENSITIVITY [None]
  - SWOLLEN TONGUE [None]
